FAERS Safety Report 15324533 (Version 2)
Quarter: 2018Q3

REPORT INFORMATION
  Report Type: Spontaneous
  Country: US (occurrence: US)
  Receive Date: 20180828
  Receipt Date: 20180830
  Transmission Date: 20181010
  Serious: No
  Sender: FDA-Public Use
  Company Number: US-ASTRAZENECA-2018SF06394

PATIENT
  Age: 731 Month
  Sex: Female
  Weight: 93 kg

DRUGS (11)
  1. STOOL SOFTENER (DOCUSATE) [Concomitant]
     Active Substance: DOCUSATE
     Indication: CONSTIPATION
     Dosage: AS REQUIRED
     Route: 048
  2. TYLENOL [Concomitant]
     Active Substance: ACETAMINOPHEN
     Indication: INFLAMMATION
     Dosage: 1000.0MG AS REQUIRED
     Route: 048
  3. IBUPROFEN. [Concomitant]
     Active Substance: IBUPROFEN
     Indication: INFLAMMATION
     Dosage: 400.0MG AS REQUIRED
     Route: 048
  4. OXYCODONE [Concomitant]
     Active Substance: OXYCODONE
     Indication: PAIN
     Dosage: 15MG TO 18MG TWO TIMES A DAY
     Route: 048
     Dates: start: 201805
  5. SENECOT [Concomitant]
  6. FLEXERIL [Suspect]
     Active Substance: CYCLOBENZAPRINE HYDROCHLORIDE
     Indication: PAIN
     Route: 048
     Dates: start: 2005
  7. GENEREIC KLONOPIN [Concomitant]
     Indication: BACK DISORDER
     Route: 048
     Dates: start: 2005
  8. GENERIC ZOFRAN [Concomitant]
     Indication: NAUSEA
     Dosage: 4.0MG AS REQUIRED
     Route: 048
     Dates: start: 201806
  9. MOVANTIK [Suspect]
     Active Substance: NALOXEGOL OXALATE
     Indication: CONSTIPATION
     Dosage: AS REQUIRED
     Route: 048
  10. GENEREIC KLONOPIN [Concomitant]
     Indication: SLEEP DISORDER
     Route: 048
     Dates: start: 2005
  11. MOVANTIK [Suspect]
     Active Substance: NALOXEGOL OXALATE
     Indication: CONSTIPATION
     Route: 048
     Dates: start: 2018

REACTIONS (7)
  - Muscle spasms [Unknown]
  - Constipation [Not Recovered/Not Resolved]
  - Abdominal discomfort [Unknown]
  - Dry mouth [Unknown]
  - Feeling abnormal [Unknown]
  - Nausea [Unknown]
  - Headache [Unknown]

NARRATIVE: CASE EVENT DATE: 201807
